FAERS Safety Report 7588701-8 (Version None)
Quarter: 2011Q3

REPORT INFORMATION
  Report Type: 
  Country: None (occurrence: None)
  Receive Date: 20110705
  Receipt Date: 20110620
  Transmission Date: 20111222
  Serious: Yes (Disabling)
  Sender: FDA-Public Use
  Company Number: US-BAYER-2011-053962

PATIENT
  Age: 57 Year
  Sex: Female

DRUGS (1)
  1. YAZ [Suspect]
     Indication: CONTRACEPTION
     Dosage: UNK
     Route: 048
     Dates: end: 20110101

REACTIONS (5)
  - ARTHRITIS [None]
  - HYPOAESTHESIA [None]
  - PARAESTHESIA [None]
  - MYALGIA [None]
  - ASTHENIA [None]
